FAERS Safety Report 8545721-4 (Version None)
Quarter: 2012Q3

REPORT INFORMATION
  Report Type: 
  Country: None (occurrence: None)
  Receive Date: 20120727
  Receipt Date: 20120725
  Transmission Date: 20120928
  Serious: Yes (Death)
  Sender: FDA-Public Use
  Company Number: US-ROCHE-1041618

PATIENT
  Sex: Female
  Weight: 59.474 kg

DRUGS (9)
  1. PROBIOTIC (UNK INGREDIENTS) [Concomitant]
  2. LOVENOX [Concomitant]
  3. XELODA [Suspect]
     Indication: COLORECTAL CANCER METASTATIC
     Route: 048
     Dates: start: 20120115, end: 20120718
  4. DIURETIC (UNK INGREDIENTS) [Concomitant]
  5. ALLEGRA [Concomitant]
  6. POTASSIUM CHLORIDE [Concomitant]
  7. VALTREX [Concomitant]
  8. NEXIUM [Concomitant]
  9. TORSEMIDE [Concomitant]

REACTIONS (5)
  - DEATH [None]
  - HYPERAESTHESIA [None]
  - PAIN IN EXTREMITY [None]
  - PALMAR-PLANTAR ERYTHRODYSAESTHESIA SYNDROME [None]
  - SKIN EXFOLIATION [None]
